FAERS Safety Report 11114717 (Version 1)
Quarter: 2015Q2

REPORT INFORMATION
  Report Type: Spontaneous
  Country: ES (occurrence: None)
  Receive Date: 20150513
  Receipt Date: 20150513
  Transmission Date: 20150821
  Serious: Yes (Hospitalization, Other)
  Sender: FDA-Public Use
  Company Number: 2015COR00095

PATIENT
  Age: 45 Year
  Sex: Female

DRUGS (4)
  1. METHADONE [Concomitant]
     Active Substance: METHADONE HYDROCHLORIDE
  2. METHYLPHENIDATE (METHYLPHENIDATE) UNKNOWN [Suspect]
     Active Substance: METHYLPHENIDATE
     Indication: DRUG DEPENDENCE
  3. CLONAZEPAM. [Concomitant]
     Active Substance: CLONAZEPAM
  4. HAART [Concomitant]

REACTIONS (5)
  - Drug abuse [None]
  - Insomnia [None]
  - Skin ulcer [None]
  - Intentional self-injury [None]
  - Somatic delusion [None]
